FAERS Safety Report 8549056-5 (Version None)
Quarter: 2012Q3

REPORT INFORMATION
  Report Type: 
  Country: None (occurrence: None)
  Receive Date: 20120730
  Receipt Date: 20120725
  Transmission Date: 20120928
  Serious: No
  Sender: FDA-Public Use
  Company Number: US-PFIZER INC-2012180293

PATIENT
  Sex: Male
  Weight: 107 kg

DRUGS (1)
  1. ADVIL [Suspect]
     Indication: LIGAMENT SPRAIN
     Dosage: FOUR TO SIX TABLETS OF 200 MG, AS NEEDED
     Route: 048
     Dates: start: 20120701, end: 20120701

REACTIONS (1)
  - DRUG SCREEN FALSE POSITIVE [None]
